FAERS Safety Report 9618953 (Version 3)
Quarter: 2014Q1

REPORT INFORMATION
  Report Type: Spontaneous
  Country: FR (occurrence: FR)
  Receive Date: 20131014
  Receipt Date: 20140206
  Transmission Date: 20141002
  Serious: Yes (Other)
  Sender: FDA-Public Use
  Company Number: FR-PFIZER INC-2013291613

PATIENT
  Age: 41 Year
  Sex: Male

DRUGS (1)
  1. XALKORI [Suspect]
     Indication: LUNG NEOPLASM MALIGNANT
     Dosage: UNK
     Dates: start: 201207

REACTIONS (4)
  - Hepatocellular injury [Unknown]
  - Hepatic steatosis [Unknown]
  - Weight increased [Unknown]
  - Oedema peripheral [Unknown]
